FAERS Safety Report 6230759-2 (Version None)
Quarter: 2009Q2

REPORT INFORMATION
  Report Type: 
  Country: None (occurrence: None)
  Receive Date: 20090616
  Receipt Date: 20090604
  Transmission Date: 20091009
  Serious: Yes (Life-Threatening, Hospitalization, Other)
  Sender: FDA-Public Use
  Company Number: GB-PFIZER INC-2004113279

PATIENT
  Age: 14 Year

DRUGS (9)
  1. VFEND [Suspect]
     Route: 048
     Dates: start: 20040913, end: 20041117
  2. CYCLOSPORINE [Concomitant]
     Route: 048
     Dates: start: 20040318
  3. PREDNISOLONE [Concomitant]
     Route: 048
     Dates: start: 20040726
  4. RANITIDINE [Concomitant]
     Route: 048
     Dates: start: 20040728
  5. MORPHINE SULFATE [Concomitant]
     Route: 048
  6. BENZALKONIUM CHLORIDE [Concomitant]
  7. NORETHISTERONE [Concomitant]
     Dates: start: 20040518
  8. CASPOFUNGIN [Concomitant]
     Route: 042
  9. ACYCLOVIR [Concomitant]
     Route: 048
     Dates: start: 20040518

REACTIONS (5)
  - ABDOMINAL PAIN [None]
  - BLOOD AMYLASE INCREASED [None]
  - GENERAL PHYSICAL HEALTH DETERIORATION [None]
  - PANCREATITIS ACUTE [None]
  - VOMITING [None]
